FAERS Safety Report 7526284-9 (Version None)
Quarter: 2011Q2

REPORT INFORMATION
  Report Type: 
  Country: None (occurrence: None)
  Receive Date: 20110606
  Receipt Date: 20110531
  Transmission Date: 20111010
  Serious: Yes (Other)
  Sender: FDA-Public Use
  Company Number: US-PFIZER INC-2011118606

PATIENT
  Sex: Female

DRUGS (2)
  1. NAPROSYN [Suspect]
     Dosage: UNK
  2. CELEBREX [Suspect]
     Dosage: UNK

REACTIONS (3)
  - GASTRIC DISORDER [None]
  - PARKINSON'S DISEASE [None]
  - HYPERTENSION [None]
